FAERS Safety Report 23808277 (Version 1)
Quarter: 2024Q2

REPORT INFORMATION
  Report Type: Other
  Country: US (occurrence: US)
  Receive Date: 20240502
  Receipt Date: 20240502
  Transmission Date: 20240716
  Serious: Yes (Other)
  Sender: FDA-Public Use
  Company Number: US-B.Braun Medical Inc.-2156419

PATIENT
  Age: 2 Month
  Sex: Male

DRUGS (2)
  1. CEFTRIAXONE SODIUM [Suspect]
     Active Substance: CEFTRIAXONE SODIUM
     Indication: Pyrexia
     Route: 042
  2. VANCOMYCIN [Suspect]
     Active Substance: VANCOMYCIN

REACTIONS (2)
  - Conjunctival hyperaemia [Unknown]
  - Peripheral swelling [Unknown]
